FAERS Safety Report 9271715 (Version 1)
Quarter: 2013Q2

REPORT INFORMATION
  Report Type: Spontaneous
  Country: US (occurrence: US)
  Receive Date: 20130506
  Receipt Date: 20130506
  Transmission Date: 20140414
  Serious: No
  Sender: FDA-Public Use
  Company Number: US-COVIDIEN/TYCO HEALTHCARE/MALLINCKRODT-T201204315

PATIENT
  Sex: Female

DRUGS (8)
  1. HYDROCODONE/ACETAMINOPHEN [Suspect]
     Indication: PAIN
     Dosage: 10/325 MG; 1 TABLET TID
  2. FEXOFENADINE [Concomitant]
     Indication: ANTIALLERGIC THERAPY
  3. BENADRYL                           /00000402/ [Concomitant]
     Dosage: IN THE MORNING
  4. PRAVASTATIN [Concomitant]
  5. DICLOFENAC [Concomitant]
     Dosage: 75 MG, BID
  6. DESPERAL [Concomitant]
     Indication: BLOOD PRESSURE
  7. PEPCID AC [Concomitant]
  8. BACLOFEN [Concomitant]
     Dosage: UNK

REACTIONS (1)
  - Pain [Unknown]
